FAERS Safety Report 8343846 (Version 9)
Quarter: 2012Q4

REPORT INFORMATION
  Report Type: 
  Country: US (occurrence: US)
  Receive Date: 20120119
  Receipt Date: 20120919
  Transmission Date: 20130627
  Serious: Yes (Hospitalization, Disabling, Other)
  Sender: FDA-Public Use
  Company Number: US-009507513-1201USA02281

PATIENT

DRUGS (3)
  1. FOSAMAX [Suspect]
     Indication: OSTEOPOROSIS
     Dosage: UNK
     Route: 048
     Dates: start: 1998, end: 2008
  2. FOSAMAX [Suspect]
     Dosage: 70 mg, QW
     Route: 048
     Dates: start: 1998, end: 2008
  3. CALCIUM [Concomitant]

REACTIONS (41)
  - Femur fracture [Recovering/Resolving]
  - Femur fracture [Not Recovered/Not Resolved]
  - Basal cell carcinoma [Unknown]
  - Mitral valve repair [Unknown]
  - Intervertebral disc operation [Unknown]
  - Humerus fracture [Unknown]
  - Post procedural haemorrhage [Unknown]
  - Joint dislocation [Unknown]
  - Dental implantation [Unknown]
  - Hypertension [Unknown]
  - Cardiac disorder [Unknown]
  - Diverticulum [Unknown]
  - Megacolon [Unknown]
  - Restless legs syndrome [Unknown]
  - Osteoarthritis [Unknown]
  - Breast disorder [Unknown]
  - Ovarian disorder [Unknown]
  - Heart valve incompetence [Unknown]
  - Spinal column stenosis [Unknown]
  - Leukocytosis [Unknown]
  - Hypokalaemia [Unknown]
  - Sciatica [Unknown]
  - Pelvic fracture [Unknown]
  - Diverticulitis [Unknown]
  - Osteopenia [Unknown]
  - Body height [Unknown]
  - Chest wall cyst [Unknown]
  - Pulmonary fibrosis [Unknown]
  - Renal cyst [Unknown]
  - Lumbar spinal stenosis [Unknown]
  - Intervertebral disc protrusion [Unknown]
  - Intervertebral disc degeneration [Unknown]
  - Scoliosis [Unknown]
  - Spondylolisthesis [Unknown]
  - Anaemia [Unknown]
  - Insomnia [Unknown]
  - Hypothyroidism [Unknown]
  - Radiculitis [Unknown]
  - Musculoskeletal pain [Unknown]
  - Constipation [Not Recovered/Not Resolved]
  - Drug ineffective [Unknown]
